FAERS Safety Report 8202927-1 (Version None)
Quarter: 2012Q1

REPORT INFORMATION
  Report Type: 
  Country: None (occurrence: None)
  Receive Date: 20120312
  Receipt Date: 20120302
  Transmission Date: 20120608
  Serious: Yes (Hospitalization)
  Sender: FDA-Public Use
  Company Number: PHHY2012JP008460

PATIENT
  Age: 38 Year
  Sex: Female

DRUGS (1)
  1. BROMOCRIPTINE MESYLATE [Suspect]
     Indication: PROLACTIN-PRODUCING PITUITARY TUMOUR
     Route: 048
     Dates: start: 20100401

REACTIONS (9)
  - BRAIN NATRIURETIC PEPTIDE INCREASED [None]
  - MATERNAL EXPOSURE DURING PREGNANCY [None]
  - CARDIAC FAILURE [None]
  - DYSPNOEA [None]
  - PULMONARY CONGESTION [None]
  - OEDEMA PERIPHERAL [None]
  - PERIPARTUM CARDIOMYOPATHY [None]
  - CARDIOMEGALY [None]
  - EJECTION FRACTION DECREASED [None]
